FAERS Safety Report 8128506-2 (Version None)
Quarter: 2012Q1

REPORT INFORMATION
  Report Type: 
  Country: None (occurrence: None)
  Receive Date: 20120210
  Receipt Date: 20120202
  Transmission Date: 20120608
  Serious: No
  Sender: FDA-Public Use
  Company Number: US-B.I. PHARMACEUTICALS,INC./RIDGEFIELD-2012-BP-02039BP

PATIENT
  Sex: Male

DRUGS (11)
  1. NEXIUM [Concomitant]
     Indication: GASTRITIS
  2. CRESTOR [Concomitant]
  3. DOXAZOSIN [Concomitant]
  4. VITAMIN D [Concomitant]
     Indication: SUPPLEMENTATION THERAPY
  5. COUMADIN [Concomitant]
     Indication: ATRIAL FIBRILLATION
  6. TOPROL-XL [Concomitant]
     Indication: HYPERTENSION
  7. FISH OIL [Concomitant]
     Indication: SUPPLEMENTATION THERAPY
  8. ZANTAC [Suspect]
     Indication: DYSPEPSIA
     Dosage: 150 MG
     Route: 048
     Dates: start: 20120102, end: 20120201
  9. ZANTAC [Suspect]
     Dosage: 300 MG
     Route: 048
     Dates: start: 20120201, end: 20120202
  10. COZAAR [Concomitant]
     Indication: HYPERTENSION
  11. DIGOXIN [Concomitant]

REACTIONS (4)
  - FEELING HOT [None]
  - DYSPEPSIA [None]
  - PARAESTHESIA [None]
  - DRUG INEFFECTIVE [None]
